FAERS Safety Report 22816896 (Version 4)
Quarter: 2023Q4

REPORT INFORMATION
  Report Type: Spontaneous
  Country: US (occurrence: US)
  Receive Date: 20230812
  Receipt Date: 20231009
  Transmission Date: 20240109
  Serious: No
  Sender: FDA-Public Use
  Company Number: US-002147023-NVSC2023US176001

PATIENT
  Age: 80 Year

DRUGS (3)
  1. LEQVIO [Suspect]
     Active Substance: INCLISIRAN SODIUM
     Indication: Arteriosclerosis
     Dosage: 284 MG
     Route: 058
     Dates: start: 20230330
  2. LEQVIO [Suspect]
     Active Substance: INCLISIRAN SODIUM
     Indication: Hyperlipidaemia
     Dosage: 284 MG
     Route: 058
     Dates: end: 20230918
  3. GEMFIBROZIL [Suspect]
     Active Substance: GEMFIBROZIL
     Indication: Product used for unknown indication
     Dosage: UNK
     Route: 065

REACTIONS (3)
  - Blood creatine phosphokinase increased [Not Recovered/Not Resolved]
  - Blood triglycerides increased [Unknown]
  - Product use in unapproved indication [Unknown]
